FAERS Safety Report 7295824-X (Version None)
Quarter: 2011Q1

REPORT INFORMATION
  Report Type: 
  Country: None (occurrence: None)
  Receive Date: 20110216
  Receipt Date: 20110204
  Transmission Date: 20110831
  Serious: No
  Sender: FDA-Public Use
  Company Number: US-ABBOTT-11P-163-0703820-00

PATIENT
  Sex: Female
  Weight: 63.56 kg

DRUGS (11)
  1. DEPLIN [Concomitant]
     Indication: PRODUCT USED FOR UNKNOWN INDICATION
  2. VITAMIN B-12 [Concomitant]
     Indication: FATIGUE
     Route: 050
  3. SIMCOR [Suspect]
     Indication: BLOOD CHOLESTEROL INCREASED
     Dosage: EVERY NIGHT
     Dates: start: 20101101, end: 20110203
  4. XYZAL [Concomitant]
     Indication: HYPERSENSITIVITY
  5. LUNESTA [Concomitant]
     Indication: INSOMNIA
  6. XYZAL [Concomitant]
     Indication: COELIAC DISEASE
  7. PRESTIQUE [Concomitant]
     Indication: DEPRESSION
     Dates: end: 20110203
  8. ALLERGY [Concomitant]
     Indication: HYPERSENSITIVITY
     Route: 050
  9. PLAVIX [Concomitant]
     Indication: CARDIAC OPERATION
     Dates: start: 20110125
  10. KLONOPIN [Concomitant]
     Indication: ANXIETY
     Dosage: PRN
  11. ASPIRIN [Concomitant]
     Indication: PRODUCT USED FOR UNKNOWN INDICATION

REACTIONS (2)
  - HEPATIC ENZYME INCREASED [None]
  - BACK DISORDER [None]
